FAERS Safety Report 8041907-6 (Version None)
Quarter: 2012Q1

REPORT INFORMATION
  Report Type: 
  Country: None (occurrence: None)
  Receive Date: 20120112
  Receipt Date: 20120112
  Transmission Date: 20120608
  Serious: Yes (Other)
  Sender: FDA-Public Use
  Company Number: None

PATIENT
  Age: 57 Year
  Sex: Female
  Weight: 63.502 kg

DRUGS (1)
  1. EXCEDRIN (MIGRAINE) [Suspect]
     Indication: TENSION HEADACHE
     Dosage: 2 TABLETS
     Route: 048
     Dates: start: 20090101, end: 20120110

REACTIONS (2)
  - HYPOAESTHESIA [None]
  - PARAESTHESIA [None]
